FAERS Safety Report 19349588 (Version 1)
Quarter: 2021Q2

REPORT INFORMATION
  Report Type: Spontaneous
  Country: US (occurrence: US)
  Receive Date: 20210531
  Receipt Date: 20210531
  Transmission Date: 20210717
  Serious: Yes (Death)
  Sender: FDA-Public Use
  Company Number: None

PATIENT
  Age: 81 Year
  Sex: Male
  Weight: 66.7 kg

DRUGS (2)
  1. SODIUM CHLORIDE 0.9% [Suspect]
     Active Substance: SODIUM CHLORIDE
     Indication: HYPOCHROMIC ANAEMIA
     Dosage: ?          OTHER FREQUENCY:ONCE;?
     Route: 042
     Dates: start: 20210529, end: 20210529
  2. IRON DEXTRAN [Suspect]
     Active Substance: IRON DEXTRAN
     Indication: HYPOCHROMIC ANAEMIA
     Dosage: ?          OTHER FREQUENCY:ONCE;?
     Route: 042
     Dates: start: 20210529, end: 20210529

REACTIONS (2)
  - Cardio-respiratory arrest [None]
  - Immediate post-injection reaction [None]

NARRATIVE: CASE EVENT DATE: 20210529
